FAERS Safety Report 4477205-7 (Version None)
Quarter: 2004Q4

REPORT INFORMATION
  Report Type: 
  Country: None (occurrence: None)
  Receive Date: 20041018
  Receipt Date: 20041008
  Transmission Date: 20050328
  Serious: Yes (Life-Threatening, Hospitalization, Disabling)
  Sender: FDA-Public Use
  Company Number: US-MERCK-0410USA01414

PATIENT
  Age: 42 Year
  Sex: Female

DRUGS (3)
  1. ESTRATEST [Concomitant]
     Route: 065
  2. VIOXX [Suspect]
     Indication: RHEUMATOID ARTHRITIS
     Route: 048
     Dates: start: 20040901, end: 20041008
  3. VIOXX [Suspect]
     Route: 048
     Dates: start: 19990501, end: 20040901

REACTIONS (3)
  - ASTHENIA [None]
  - FATIGUE [None]
  - MYOCARDIAL INFARCTION [None]
